FAERS Safety Report 10042273 (Version 2)
Quarter: 2014Q2

REPORT INFORMATION
  Report Type: Spontaneous
  Country: US (occurrence: US)
  Receive Date: 20140327
  Receipt Date: 20140402
  Transmission Date: 20141212
  Serious: Yes (Death)
  Sender: FDA-Public Use
  Company Number: US-TAKEDA-2014TUS002349

PATIENT
  Sex: 0

DRUGS (5)
  1. BRINTELLIX [Suspect]
     Indication: MAJOR DEPRESSION
     Dosage: 10 MG, QD
     Route: 048
     Dates: start: 20140212
  2. BRINTELLIX [Suspect]
     Dosage: 20 MG, QD
     Route: 048
     Dates: end: 20140307
  3. XANAX [Concomitant]
     Indication: ANXIETY
     Dosage: 0.25 MG, BID
     Route: 048
     Dates: start: 2010, end: 20140305
  4. EFFEXOR [Concomitant]
     Dosage: 75 MG, 1/WEEK
     Route: 048
     Dates: start: 2010, end: 20140305
  5. ZOCOR [Concomitant]
     Indication: HYPERLIPIDAEMIA
     Dosage: UNK

REACTIONS (2)
  - Completed suicide [Fatal]
  - Gun shot wound [Fatal]
